FAERS Safety Report 9258109 (Version 1)
Quarter: 2013Q2

REPORT INFORMATION
  Report Type: Spontaneous
  Country: GR (occurrence: GR)
  Receive Date: 20130426
  Receipt Date: 20130426
  Transmission Date: 20140414
  Serious: Yes (Other)
  Sender: FDA-Public Use
  Company Number: GR-BAYER-2013-052501

PATIENT
  Age: 42 Year
  Sex: Female

DRUGS (2)
  1. CIPROXIN [Suspect]
     Indication: URINARY TRACT INFECTION
     Dosage: 500 MG, BID
     Route: 048
     Dates: start: 2013, end: 2013
  2. CIPROXIN [Suspect]
     Indication: PROPHYLAXIS
     Dosage: 500 MG, BID
     Route: 048
     Dates: start: 20130418

REACTIONS (1)
  - Haematochezia [None]
